FAERS Safety Report 20686103 (Version 1)
Quarter: 2022Q2

REPORT INFORMATION
  Report Type: Spontaneous
  Country: US (occurrence: US)
  Receive Date: 20220407
  Receipt Date: 20220407
  Transmission Date: 20220721
  Serious: No
  Sender: FDA-Public Use
  Company Number: US-JAZZ-2022-US-001960

PATIENT
  Sex: Female

DRUGS (1)
  1. SUNOSI [Suspect]
     Active Substance: SOLRIAMFETOL
     Indication: Hypersomnia
     Dosage: UNK

REACTIONS (1)
  - Off label use [Unknown]
